FAERS Safety Report 8164628-8 (Version None)
Quarter: 2012Q1

REPORT INFORMATION
  Report Type: 
  Country: None (occurrence: None)
  Receive Date: 20120227
  Receipt Date: 20120215
  Transmission Date: 20120608
  Serious: No
  Sender: FDA-Public Use
  Company Number: US-BIOGENIDEC-2012BI003918

PATIENT
  Age: 41 Year
  Sex: Female

DRUGS (2)
  1. TYSABRI [Suspect]
     Indication: MULTIPLE SCLEROSIS
     Route: 042
     Dates: start: 20080402, end: 20090129
  2. TYSABRI [Suspect]
     Route: 042
     Dates: start: 20090730, end: 20111220

REACTIONS (10)
  - FATIGUE [None]
  - MEMORY IMPAIRMENT [None]
  - DIZZINESS [None]
  - CONTUSION [None]
  - LOSS OF CONSCIOUSNESS [None]
  - PARAESTHESIA [None]
  - SYNCOPE [None]
  - HYPOAESTHESIA [None]
  - FALL [None]
  - MIGRAINE [None]
